FAERS Safety Report 6220939-4 (Version None)
Quarter: 2009Q2

REPORT INFORMATION
  Report Type: 
  Country: None (occurrence: None)
  Receive Date: 20090610
  Receipt Date: 20090605
  Transmission Date: 20091009
  Serious: Yes (Hospitalization, Other)
  Sender: FDA-Public Use
  Company Number: CA-ROXANE LABORATORIES, INC.-2009-RO-00556RO

PATIENT
  Age: 62 Year
  Sex: Male

DRUGS (8)
  1. RAMIPRIL [Suspect]
     Indication: CARDIOVASCULAR DISORDER
     Dosage: 10MG
  2. AMLODIPINE [Suspect]
     Indication: CARDIOVASCULAR DISORDER
  3. FUROSEMIDE [Suspect]
     Indication: CARDIOVASCULAR DISORDER
  4. ASPIRIN [Suspect]
     Indication: CARDIOVASCULAR DISORDER
  5. METOPROLOL SUCCINATE [Suspect]
     Indication: CARDIOVASCULAR DISORDER
  6. ATORVASTATIN CALCIUM [Suspect]
     Indication: CARDIOVASCULAR DISORDER
  7. NITROGLYCERIN [Suspect]
     Indication: CARDIOVASCULAR DISORDER
     Route: 062
  8. SODIUM CHLORIDE [Concomitant]

REACTIONS (4)
  - ANAPHYLACTOID REACTION [None]
  - BRADYCARDIA [None]
  - BUNDLE BRANCH BLOCK LEFT [None]
  - CORONARY ARTERY DISEASE [None]
